FAERS Safety Report 8479304-1 (Version None)
Quarter: 2012Q2

REPORT INFORMATION
  Report Type: 
  Country: None (occurrence: None)
  Receive Date: 20120629
  Receipt Date: 20120618
  Transmission Date: 20120825
  Serious: Yes (Life-Threatening)
  Sender: FDA-Public Use
  Company Number: FR-GLAXOSMITHKLINE-B0808778A

PATIENT
  Sex: Female

DRUGS (8)
  1. POLARAMINE [Suspect]
     Indication: PREMEDICATION
     Dosage: 5MG SINGLE DOSE
     Route: 042
     Dates: start: 20120518, end: 20120518
  2. METHYLPREDNISOLONE [Suspect]
     Indication: PREMEDICATION
     Dosage: 120MG SINGLE DOSE
     Route: 042
     Dates: start: 20120518, end: 20120518
  3. ONDANSETRON HCL [Suspect]
     Indication: PREMEDICATION
     Dosage: 8MG SINGLE DOSE
     Route: 042
     Dates: start: 20120518, end: 20120518
  4. PLITICAN [Suspect]
     Indication: PREMEDICATION
     Dosage: 50MG SINGLE DOSE
     Route: 042
     Dates: start: 20120518, end: 20120518
  5. TAXOL [Concomitant]
     Indication: CHEMOTHERAPY
  6. CISPLATIN [Concomitant]
     Indication: CHEMOTHERAPY
  7. 5% GLUCOSE [Concomitant]
     Dosage: 50ML SINGLE DOSE
     Route: 042
     Dates: start: 20120518, end: 20120518
  8. ZANTAC [Suspect]
     Indication: PREMEDICATION
     Dosage: 50MG SINGLE DOSE
     Route: 042
     Dates: start: 20120518, end: 20120518

REACTIONS (3)
  - MALAISE [None]
  - ERYTHEMA [None]
  - RESPIRATORY DISORDER [None]
